FAERS Safety Report 14464410 (Version 1)
Quarter: 2018Q1

REPORT INFORMATION
  Report Type: Spontaneous
  Country: US (occurrence: US)
  Receive Date: 20180130
  Receipt Date: 20180130
  Transmission Date: 20180509
  Serious: No
  Sender: FDA-Public Use
  Company Number: US-TAKEDA-2018TUS002015

PATIENT
  Age: 56 Year
  Sex: Female
  Weight: 54.42 kg

DRUGS (6)
  1. SIMVASTATIN. [Concomitant]
     Active Substance: SIMVASTATIN
     Indication: BLOOD CHOLESTEROL ABNORMAL
     Dosage: UNK, QD
     Route: 048
  2. GARLIC                             /01570501/ [Concomitant]
     Active Substance: GARLIC
     Indication: BLOOD GLUCOSE ABNORMAL
     Dosage: UNK, QD
     Route: 048
  3. CINNAMON                           /01647501/ [Concomitant]
     Active Substance: CINNAMON
     Indication: BLOOD GLUCOSE ABNORMAL
     Dosage: UNK, QD
     Route: 048
  4. VITAMIN C [Concomitant]
     Active Substance: ASCORBIC ACID
     Indication: GENERAL PHYSICAL CONDITION
     Dosage: UNK, QD
     Route: 048
  5. KAZANO [Suspect]
     Active Substance: ALOGLIPTIN BENZOATE\METFORMIN HYDROCHLORIDE
     Indication: TYPE 2 DIABETES MELLITUS
     Dosage: 12.5/ 1000 MG, QD
     Route: 048
     Dates: start: 20180118, end: 20180120
  6. L-ARGININE                         /00126101/ [Concomitant]
     Active Substance: ARGININE
     Indication: ARTERIOSCLEROSIS
     Dosage: UNK, QD
     Route: 048

REACTIONS (6)
  - Skin irritation [Recovered/Resolved]
  - Peripheral swelling [Recovered/Resolved]
  - Pruritus [Recovered/Resolved]
  - Nausea [Recovered/Resolved]
  - Erythema [Recovered/Resolved]
  - Headache [Recovered/Resolved]

NARRATIVE: CASE EVENT DATE: 20180120
